FAERS Safety Report 7731346-7 (Version None)
Quarter: 2011Q3

REPORT INFORMATION
  Report Type: 
  Country: None (occurrence: None)
  Receive Date: 20110906
  Receipt Date: 20110810
  Transmission Date: 20111222
  Serious: No
  Sender: FDA-Public Use
  Company Number: US-AMGEN-USASP2011028804

PATIENT
  Sex: Female
  Weight: 55.329 kg

DRUGS (4)
  1. CISPLATIN [Concomitant]
     Dosage: UNK UNK, QCYCLE
     Dates: start: 20110319, end: 20110702
  2. ZOMETA [Concomitant]
     Dosage: UNK
     Dates: start: 20110610
  3. NEULASTA [Concomitant]
  4. XGEVA [Suspect]
     Indication: METASTASES TO BONE
     Dosage: 120 MG, QMO
     Dates: start: 20110319, end: 20110512

REACTIONS (5)
  - VENOUS THROMBOSIS [None]
  - INJECTION SITE ERYTHEMA [None]
  - INJECTION SITE SWELLING [None]
  - INJECTION SITE PAIN [None]
  - NODULE [None]
